FAERS Safety Report 9684218 (Version 1)
Quarter: 2013Q4

REPORT INFORMATION
  Report Type: Spontaneous
  Country: US (occurrence: US)
  Receive Date: 20131112
  Receipt Date: 20131112
  Transmission Date: 20140711
  Serious: No
  Sender: FDA-Public Use
  Company Number: US-009507513-1310USA010612

PATIENT
  Age: 38 Year
  Sex: Female

DRUGS (1)
  1. FOLLISTIM [Suspect]
     Indication: OVULATION INDUCTION
     Dosage: UNK
     Dates: start: 20130714

REACTIONS (1)
  - Ovulation disorder [Unknown]
